FAERS Safety Report 22919635 (Version 3)
Quarter: 2023Q4

REPORT INFORMATION
  Report Type: Report from Study
  Country: JP (occurrence: JP)
  Receive Date: 20230908
  Receipt Date: 20231117
  Transmission Date: 20240109
  Serious: Yes (Hospitalization)
  Sender: FDA-Public Use
  Company Number: JP-JNJFOC-20230906947

PATIENT
  Age: 24 Year
  Sex: Female
  Weight: 41 kg

DRUGS (7)
  1. EPOPROSTENOL [Suspect]
     Active Substance: EPOPROSTENOL
     Indication: Pulmonary arterial hypertension
     Dosage: DOSE UNKNOWN, GRADUALLY INCREASED?EPOPROSTENOL SODIUM:1.593MG?1-26NG/KG/MIN
     Route: 041
     Dates: start: 20151204
  2. OPSUMIT [Suspect]
     Active Substance: MACITENTAN
     Indication: Pulmonary arterial hypertension
     Dosage: DOSE UNKNOWN?MACITENTAN:10MG
     Route: 048
     Dates: start: 20160916
  3. TADALAFIL [Concomitant]
     Active Substance: TADALAFIL
     Indication: Pulmonary arterial hypertension
     Dosage: DOSE UNKNOWN
     Route: 048
  4. RIOCIGUAT [Concomitant]
     Active Substance: RIOCIGUAT
     Dosage: DOSE UNKNOWN
     Route: 048
  5. ILOPROST [Concomitant]
     Active Substance: ILOPROST
     Dosage: DOSE UNKNOWN
     Route: 055
  6. OXYGEN [Concomitant]
     Active Substance: OXYGEN
     Dosage: DOSE UNKNOWN
     Route: 055
  7. WARFARIN [Concomitant]
     Active Substance: WARFARIN
     Dosage: DOSE UNKNOWN
     Route: 048

REACTIONS (6)
  - Right ventricular failure [Recovering/Resolving]
  - Haemoptysis [Recovered/Resolved]
  - Pain in jaw [Recovering/Resolving]
  - Diarrhoea [Recovering/Resolving]
  - Nausea [Recovering/Resolving]
  - Headache [Recovering/Resolving]

NARRATIVE: CASE EVENT DATE: 20171122
